FAERS Safety Report 23300005 (Version 1)
Quarter: 2023Q4

REPORT INFORMATION
  Report Type: Spontaneous
  Country: RU (occurrence: RU)
  Receive Date: 20231215
  Receipt Date: 20231215
  Transmission Date: 20240109
  Serious: Yes (Other)
  Sender: FDA-Public Use
  Company Number: RU-BoehringerIngelheim-2023-BI-278284

PATIENT
  Age: 68 Year
  Sex: Male

DRUGS (1)
  1. JARDIANCE [Suspect]
     Active Substance: EMPAGLIFLOZIN
     Indication: Portal hypertension
     Route: 048

REACTIONS (2)
  - Oedema [Recovered/Resolved]
  - Intentional product use issue [Recovered/Resolved]
